FAERS Safety Report 4266870-5 (Version None)
Quarter: 2004Q1

REPORT INFORMATION
  Report Type: 
  Country: None (occurrence: None)
  Receive Date: 20040108
  Receipt Date: 20040108
  Transmission Date: 20041129
  Serious: Yes (Hospitalization)
  Sender: FDA-Public Use
  Company Number: None

PATIENT
  Sex: Female
  Weight: 56.246 kg

DRUGS (2)
  1. TAXOTERE [Suspect]
     Indication: GASTRIC CANCER
     Dosage: 60 MG D1 ITNRAVENOUS
     Route: 042
     Dates: start: 20031210, end: 20031219
  2. CARBOPLATIN [Suspect]
     Indication: GASTRIC CANCER
     Dosage: 145 MG D1 INTRAVENOUS
     Route: 042
     Dates: start: 20031219, end: 20031219

REACTIONS (3)
  - ANAEMIA [None]
  - FATIGUE [None]
  - NAUSEA [None]
